FAERS Safety Report 20609683 (Version 1)
Quarter: 2022Q1

REPORT INFORMATION
  Report Type: Report from Study
  Country: ZA (occurrence: ZA)
  Receive Date: 20220318
  Receipt Date: 20220318
  Transmission Date: 20220424
  Serious: Yes (Hospitalization)
  Sender: FDA-Public Use
  Company Number: ZA-SA-SAC20211122000376

PATIENT
  Age: 42 Year
  Sex: Female

DRUGS (3)
  1. INSULIN GLARGINE [Suspect]
     Active Substance: INSULIN GLARGINE
     Indication: Type 2 diabetes mellitus
     Dosage: 10 IU, HS
     Route: 058
     Dates: start: 20211105
  2. ATORVASTATIN [Concomitant]
     Active Substance: ATORVASTATIN
     Dosage: 10 MG, QD (BEFORE SUPPER)
     Dates: start: 20211104
  3. METFORMIN [Concomitant]
     Active Substance: METFORMIN HYDROCHLORIDE
     Dosage: 1000 MG, BID (BEFORE BREAKFAST, BEFORE SUPPER)
     Dates: start: 20211104

REACTIONS (5)
  - Pain in extremity [Unknown]
  - Hysteroscopy [Unknown]
  - Endometriosis ablation [Unknown]
  - Ovarian cystectomy [Unknown]
  - Product dispensing error [Unknown]

NARRATIVE: CASE EVENT DATE: 20211110
